FAERS Safety Report 11783618 (Version 1)
Quarter: 2015Q4

REPORT INFORMATION
  Report Type: Spontaneous
  Country: US (occurrence: US)
  Receive Date: 20151127
  Receipt Date: 20151127
  Transmission Date: 20160305
  Serious: Yes (Life-Threatening, Other)
  Sender: FDA-Public Use
  Company Number: US-BAYER-2015-468857

PATIENT
  Age: 72 Year
  Sex: Male

DRUGS (8)
  1. ACETYLSALICYLIC ACID({=100 MG) [Suspect]
     Active Substance: ASPIRIN
  2. ARIPIPRAZOLE. [Interacting]
     Active Substance: ARIPIPRAZOLE
  3. LITHIUM CARBONATE. [Interacting]
     Active Substance: LITHIUM CARBONATE
     Indication: BIPOLAR DISORDER
     Dosage: 300 MG, QD
  4. LISINOPRIL. [Interacting]
     Active Substance: LISINOPRIL
  5. DULOXETINE. [Interacting]
     Active Substance: DULOXETINE
  6. LITHIUM CARBONATE. [Interacting]
     Active Substance: LITHIUM CARBONATE
     Indication: BIPOLAR DISORDER
     Dosage: 450 MG, ER QHS
  7. METFORMIN [Interacting]
     Active Substance: METFORMIN HYDROCHLORIDE
  8. OLANZAPINE. [Interacting]
     Active Substance: OLANZAPINE

REACTIONS (9)
  - Pneumonia [None]
  - Drug interaction [None]
  - Toxicity to various agents [None]
  - Bradycardia [None]
  - Hypotension [None]
  - Apnoea [None]
  - Multi-organ failure [None]
  - Hypothermia [None]
  - Mental status changes [None]
